FAERS Safety Report 4592377-1 (Version None)
Quarter: 2005Q1

REPORT INFORMATION
  Report Type: 
  Country: None (occurrence: None)
  Receive Date: 20050228
  Receipt Date: 20050106
  Transmission Date: 20050727
  Serious: No
  Sender: FDA-Public Use
  Company Number: US-BRISTOL-MYERS SQUIBB COMPANY-12815304

PATIENT
  Age: 37 Year
  Sex: Female
  Weight: 108 kg

DRUGS (7)
  1. ABILIFY [Suspect]
     Indication: SCHIZOPHRENIA
     Route: 048
     Dates: start: 20040101, end: 20050102
  2. WELLBUTRIN XL [Concomitant]
  3. VISTARIL [Concomitant]
  4. AMBIEN [Concomitant]
  5. SYNTHROID [Concomitant]
  6. COGENTIN [Concomitant]
  7. PROTONIX [Concomitant]

REACTIONS (2)
  - PRESCRIBED OVERDOSE [None]
  - VISION BLURRED [None]
